FAERS Safety Report 19109698 (Version 7)
Quarter: 2022Q4

REPORT INFORMATION
  Report Type: Report from Study
  Country: JP (occurrence: JP)
  Receive Date: 20210409
  Receipt Date: 20221227
  Transmission Date: 20230113
  Serious: Yes (Hospitalization)
  Sender: FDA-Public Use
  Company Number: JP-ONO-2021JP006462

PATIENT
  Age: 73 Year
  Sex: Female
  Weight: 35.8 kg

DRUGS (35)
  1. ETELCALCETIDE [Suspect]
     Active Substance: ETELCALCETIDE
     Indication: Hyperparathyroidism secondary
     Dosage: 5 MILLIGRAM, UNK
     Route: 010
     Dates: start: 20190914, end: 20201207
  2. ETELCALCETIDE [Suspect]
     Active Substance: ETELCALCETIDE
     Dosage: 5 MILLIGRAM, UNK
     Route: 065
     Dates: start: 20211012, end: 20220201
  3. OXAROL [Concomitant]
     Active Substance: MAXACALCITOL
     Dosage: 10 UG, Q56H
     Route: 065
     Dates: start: 20180901, end: 20181118
  4. OXAROL [Concomitant]
     Active Substance: MAXACALCITOL
     Dosage: 15 UG, Q56H
     Route: 065
     Dates: start: 20181120, end: 20181215
  5. OXAROL [Concomitant]
     Active Substance: MAXACALCITOL
     Dosage: 10 UG, Q56H
     Route: 065
     Dates: start: 20181218, end: 20190119
  6. OXAROL [Concomitant]
     Active Substance: MAXACALCITOL
     Dosage: 12.5 UG, Q56H
     Route: 065
     Dates: start: 20190122, end: 20190216
  7. OXAROL [Concomitant]
     Active Substance: MAXACALCITOL
     Dosage: 10 UG, Q56H
     Route: 065
     Dates: start: 20190219, end: 20190413
  8. OXAROL [Concomitant]
     Active Substance: MAXACALCITOL
     Dosage: 12.5 UG, Q56H
     Route: 065
     Dates: start: 20190416, end: 20190518
  9. OXAROL [Concomitant]
     Active Substance: MAXACALCITOL
     Dosage: 15 UG, Q56H
     Route: 065
     Dates: start: 20190521, end: 20191116
  10. OXAROL [Concomitant]
     Active Substance: MAXACALCITOL
     Dosage: 10 UG, Q56H
     Route: 065
     Dates: start: 20191119, end: 20200808
  11. OXAROL [Concomitant]
     Active Substance: MAXACALCITOL
     Dosage: 10 UG, Q84H
     Route: 065
     Dates: start: 20200810, end: 20200912
  12. OXAROL [Concomitant]
     Active Substance: MAXACALCITOL
     Dosage: 5 UG, Q56H
     Route: 065
     Dates: start: 20200915, end: 20210206
  13. OXAROL [Concomitant]
     Active Substance: MAXACALCITOL
     Dosage: 10 UG, Q84H
     Route: 065
     Dates: start: 20210209, end: 20210320
  14. OXAROL [Concomitant]
     Active Substance: MAXACALCITOL
     Dosage: 5 UG, Q56H
     Route: 065
     Dates: start: 20210323, end: 20210612
  15. OXAROL [Concomitant]
     Active Substance: MAXACALCITOL
     Dosage: 5 UG, Q84H
     Route: 065
     Dates: start: 20210615, end: 20210911
  16. OXAROL [Concomitant]
     Active Substance: MAXACALCITOL
     Dosage: 2.5 UG, Q56H
     Route: 065
     Dates: start: 20210914, end: 20220409
  17. OXAROL [Concomitant]
     Active Substance: MAXACALCITOL
     Dosage: 5 UG, Q84H
     Route: 065
     Dates: start: 20220412, end: 20221008
  18. OXAROL [Concomitant]
     Active Substance: MAXACALCITOL
     Dosage: 5 UG, Q56H
     Dates: start: 20221011, end: 20221110
  19. OXAROL [Concomitant]
     Active Substance: MAXACALCITOL
     Dosage: 10 UG, Q84H
     Dates: start: 20221112, end: 20221126
  20. OXAROL [Concomitant]
     Active Substance: MAXACALCITOL
     Dosage: 5 UG, Q56H
     Dates: start: 20221129
  21. Fesin [Concomitant]
     Dosage: 40 MILLIGRAM, QWK
     Route: 065
     Dates: start: 20190202, end: 20190316
  22. Fesin [Concomitant]
     Dosage: 40 MILLIGRAM, QWK
     Route: 065
     Dates: start: 20190817, end: 20191116
  23. Fesin [Concomitant]
     Dosage: 40 MILLIGRAM, QWK
     Route: 065
     Dates: start: 20200711, end: 20200912
  24. Fesin [Concomitant]
     Dosage: 40 MILLIGRAM, QWK
     Route: 065
     Dates: start: 20210420, end: 20210710
  25. ESTRADIOL [Concomitant]
     Active Substance: ESTRADIOL
     Dosage: UNK
     Route: 065
  26. P-tol [Concomitant]
     Dosage: 750 MILLIGRAM, QD
     Route: 065
     Dates: start: 20210819, end: 20220625
  27. Upasita [Concomitant]
     Dosage: 25 MICROGRAM, Q56H
     Route: 041
     Dates: start: 20220203
  28. EPOETIN ALFA [Concomitant]
     Active Substance: ERYTHROPOIETIN
     Dosage: 750 INTERNATIONAL UNIT, QWK
     Route: 065
     Dates: start: 20210615, end: 20210803
  29. FOSRENOL [Concomitant]
     Active Substance: LANTHANUM CARBONATE
     Dosage: 1500 MG, EVERYDAY
     Route: 048
     Dates: end: 20210203
  30. FOSRENOL [Concomitant]
     Active Substance: LANTHANUM CARBONATE
     Dosage: 750 MG, EVERYDAY
     Dates: end: 20201111
  31. ERYTHROPOIETIN [Concomitant]
     Active Substance: ERYTHROPOIETIN
     Dosage: 1500 INTERNATIONAL UNIT, QWK
     Route: 065
     Dates: start: 20200402, end: 20200418
  32. Darbepoetin alfa biosimilar 1 [Concomitant]
     Dosage: 20 MICROGRAM, QWK
     Route: 065
     Dates: start: 20200421, end: 20210420
  33. Darbepoetin alfa biosimilar 1 [Concomitant]
     Dosage: 15 MICROGRAM, QWK
     Dates: start: 20210427, end: 20210511
  34. Darbepoetin alfa biosimilar 1 [Concomitant]
     Dosage: 10 MICROGRAM, QWK
     Dates: start: 20210518, end: 20210525
  35. Darbepoetin alfa biosimilar 1 [Concomitant]
     Dosage: 5 MICROGRAM, QWK
     Dates: start: 20210601, end: 20210608

REACTIONS (9)
  - Aortic valve stenosis [Recovered/Resolved]
  - Shunt stenosis [Recovered/Resolved]
  - Shunt stenosis [Recovered/Resolved]
  - Shunt stenosis [Recovered/Resolved]
  - Shunt stenosis [Recovered/Resolved]
  - Shunt stenosis [Recovered/Resolved]
  - Shunt stenosis [Recovered/Resolved]
  - Carpal tunnel syndrome [Recovered/Resolved]
  - Shunt stenosis [Recovered/Resolved]

NARRATIVE: CASE EVENT DATE: 20191116
